FAERS Safety Report 6583522-7 (Version None)
Quarter: 2010Q1

REPORT INFORMATION
  Report Type: 
  Country: None (occurrence: None)
  Receive Date: 20100216
  Receipt Date: 20100209
  Transmission Date: 20100710
  Serious: Yes (Hospitalization, Other)
  Sender: FDA-Public Use
  Company Number: PHHO2009JP03293

PATIENT
  Sex: Female
  Weight: 41 kg

DRUGS (30)
  1. AFINITOR [Suspect]
     Indication: PANCREATIC NEUROENDOCRINE TUMOUR
     Dosage: DOUBLE BLIND
     Route: 048
     Dates: start: 20080603
  2. BLINDED NO TREATMENT RECEIVED NOMED [Suspect]
     Indication: PANCREATIC NEUROENDOCRINE TUMOUR
     Dosage: DOUBLE BLIND
     Route: 048
     Dates: start: 20080603
  3. BLINDED PLACEBO COMP-PLA+ [Suspect]
     Indication: PANCREATIC NEUROENDOCRINE TUMOUR
     Dosage: DOUBLE BLIND
     Route: 048
     Dates: start: 20080603
  4. AFINITOR [Suspect]
     Dosage: 10 MG, DAILY
     Route: 048
     Dates: start: 20100106
  5. BLINDED NO TREATMENT RECEIVED NOMED [Suspect]
     Dosage: 10 MG, DAILY
     Route: 048
     Dates: start: 20100106
  6. BLINDED PLACEBO COMP-PLA+ [Suspect]
     Dosage: 10 MG, DAILY
     Route: 048
     Dates: start: 20100106
  7. RAD001 [Suspect]
     Indication: PANCREATIC NEUROENDOCRINE TUMOUR
     Dosage: 10 MG
     Route: 048
     Dates: start: 20080808, end: 20080813
  8. RAD001 [Suspect]
     Dosage: 10 MG
     Route: 048
     Dates: start: 20080821, end: 20090227
  9. RAD001 [Suspect]
     Dosage: 10 MG
     Route: 048
     Dates: start: 20090306, end: 20090622
  10. RAD001 [Suspect]
     Dosage: 10 MG
     Route: 048
     Dates: start: 20090707
  11. PANCREATIN [Concomitant]
     Indication: PANCREATITIS CHRONIC
  12. URSO 250 [Concomitant]
     Indication: HEPATIC FUNCTION ABNORMAL
  13. MOHRUS [Concomitant]
     Indication: BACK PAIN
  14. ALOSENN [Concomitant]
     Indication: CONSTIPATION
  15. PARIET [Concomitant]
     Indication: REFLUX OESOPHAGITIS
  16. DOGMATYL [Concomitant]
  17. ALESION [Concomitant]
     Indication: RHINITIS ALLERGIC
  18. INTAL [Concomitant]
     Indication: RHINITIS ALLERGIC
  19. LENDORMIN [Concomitant]
     Indication: INSOMNIA
  20. ALLEGRA [Concomitant]
     Indication: RHINITIS ALLERGIC
  21. GARASONE [Concomitant]
     Indication: RASH
  22. EURAX [Concomitant]
     Indication: RASH
  23. LAMISIL [Concomitant]
     Indication: ONYCHOMYCOSIS
  24. CRAVIT [Concomitant]
     Indication: PYREXIA
  25. CALONAL [Concomitant]
     Indication: HEADACHE
  26. LOXONIN [Concomitant]
     Indication: PYREXIA
  27. KENALOG [Concomitant]
     Indication: CHEILITIS
  28. ATARAX [Concomitant]
     Indication: RASH
  29. ROHYPNOL [Concomitant]
     Indication: INSOMNIA
  30. SLOW-K [Concomitant]
     Indication: HYPOKALAEMIA

REACTIONS (14)
  - BILIARY ANASTOMOSIS [None]
  - CARDIAC FUNCTION TEST ABNORMAL [None]
  - CARDIOMYOPATHY [None]
  - CATHETERISATION CARDIAC [None]
  - CHILLS [None]
  - CHOLANGITIS [None]
  - DECREASED APPETITE [None]
  - GASTROINTESTINAL HYPOMOTILITY [None]
  - HEADACHE [None]
  - INFLAMMATION [None]
  - MALIGNANT NEOPLASM PROGRESSION [None]
  - NASOPHARYNGITIS [None]
  - OROPHARYNGEAL PAIN [None]
  - PYREXIA [None]
